FAERS Safety Report 24795857 (Version 1)
Quarter: 2025Q1

REPORT INFORMATION
  Report Type: Report from Study
  Country: CN (occurrence: CN)
  Receive Date: 20250101
  Receipt Date: 20250101
  Transmission Date: 20250409
  Serious: Yes (Other)
  Sender: ROCHE
  Company Number: CN-ROCHE-10000159942

PATIENT

DRUGS (2)
  1. BEVACIZUMAB [Suspect]
     Active Substance: BEVACIZUMAB
     Indication: Colorectal cancer metastatic
     Route: 065
  2. CETUXIMAB [Suspect]
     Active Substance: CETUXIMAB
     Indication: Colorectal cancer metastatic
     Route: 065

REACTIONS (13)
  - Leukopenia [Unknown]
  - Palmar-plantar erythrodysaesthesia syndrome [Unknown]
  - Thrombocytopenia [Unknown]
  - Hepatic function abnormal [Unknown]
  - Neutropenia [Unknown]
  - Thyroid disorder [Unknown]
  - Diarrhoea [Unknown]
  - Rash [Unknown]
  - Reactive capillary endothelial proliferation [Unknown]
  - Hypothyroidism [Unknown]
  - Hypertension [Unknown]
  - Hyperglycaemia [Unknown]
  - Hepatic function abnormal [Unknown]
